FAERS Safety Report 4473444-X (Version None)
Quarter: 2004Q3

REPORT INFORMATION
  Report Type: 
  Country: None (occurrence: None)
  Receive Date: 20040917
  Receipt Date: 20040624
  Transmission Date: 20050211
  Serious: No
  Sender: FDA-Public Use
  Company Number: US-JNJFOC-20040607620

PATIENT
  Age: 27 Year
  Sex: Female
  Weight: 66.2252 kg

DRUGS (5)
  1. ORTHO EVRA [Suspect]
     Indication: CONTRACEPTION
     Dosage: 1 DOSE(S), 3 IN 4 WEEK, TRANSDERMAL
     Route: 062
     Dates: start: 20040531
  2. DARVOCET [Concomitant]
  3. LORTAB [Concomitant]
  4. PHENERGAN [Concomitant]
  5. CITRACAL (CALCIUM CITRATE) [Concomitant]

REACTIONS (1)
  - MENORRHAGIA [None]
